FAERS Safety Report 5870723-6 (Version None)
Quarter: 2008Q3

REPORT INFORMATION
  Report Type: 
  Country: None (occurrence: None)
  Receive Date: 20080904
  Receipt Date: 20080827
  Transmission Date: 20090109
  Serious: Yes (Disabling, Other)
  Sender: FDA-Public Use
  Company Number: PHHY2008GB19755

PATIENT
  Age: 46 Year
  Sex: Male
  Weight: 80 kg

DRUGS (9)
  1. LAMISIL [Suspect]
     Indication: TINEA PEDIS
     Dosage: 250 MG/DAY
     Route: 048
     Dates: start: 20070801
  2. DIAZEPAM [Concomitant]
     Dosage: 2 MG/DAY
     Route: 048
  3. GOSERELIN [Concomitant]
     Indication: PROSTATE CANCER
     Route: 030
  4. HYDROXOCOBALAMIN [Concomitant]
  5. MIRTAZAPINE [Concomitant]
     Dosage: 45 MG, QD
  6. NABUMETONE [Concomitant]
     Dosage: 1000 MG, QD
  7. ORAMORPH SR [Concomitant]
  8. VENTOLIN [Concomitant]
  9. VITAMIN B [Concomitant]

REACTIONS (2)
  - BURNING SENSATION [None]
  - NEUROPATHY PERIPHERAL [None]
